FAERS Safety Report 4778410-2 (Version None)
Quarter: 2005Q3

REPORT INFORMATION
  Report Type: 
  Country: None (occurrence: None)
  Receive Date: 20050926
  Receipt Date: 20050919
  Transmission Date: 20060218
  Serious: Yes (Other)
  Sender: FDA-Public Use
  Company Number: US-JNJFOC-20050904933

PATIENT
  Sex: Female

DRUGS (5)
  1. TYLENOL (CAPLET) [Suspect]
  2. TYLENOL (CAPLET) [Suspect]
     Indication: BACK PAIN
  3. PAIN RELIEF MEDICATIONS [Suspect]
     Indication: PAIN
  4. OXYCONTIN [Concomitant]
  5. UNSPECIFIED MEDICATIONS [Concomitant]

REACTIONS (2)
  - DRUG INEFFECTIVE [None]
  - HAEMANGIOMA OF LIVER [None]
